FAERS Safety Report 24871020 (Version 2)
Quarter: 2025Q1

REPORT INFORMATION
  Report Type: Spontaneous
  Country: GR (occurrence: GR)
  Receive Date: 20250122
  Receipt Date: 20250129
  Transmission Date: 20250409
  Serious: Yes (Other)
  Sender: JOHNSON AND JOHNSON
  Company Number: GR-BAYER-2025A008961

PATIENT
  Age: 78 Year
  Sex: Female

DRUGS (6)
  1. XARELTO [Suspect]
     Active Substance: RIVAROXABAN
     Indication: Pulmonary embolism
     Route: 048
  2. XARELTO [Suspect]
     Active Substance: RIVAROXABAN
     Dosage: 15 MG, QD
  3. XARELTO [Suspect]
     Active Substance: RIVAROXABAN
  4. XARELTO [Suspect]
     Active Substance: RIVAROXABAN
  5. METOPROLOL [Concomitant]
     Active Substance: METOPROLOL
     Indication: Arrhythmia
  6. UNSPECIFIED INGREDIENT [Concomitant]
     Active Substance: UNSPECIFIED INGREDIENT
     Indication: Hypertension

REACTIONS (7)
  - Retinal haemorrhage [Recovering/Resolving]
  - Skin haemorrhage [Recovering/Resolving]
  - Haemorrhoidal haemorrhage [Recovering/Resolving]
  - Haemorrhage [Recovering/Resolving]
  - Contusion [Unknown]
  - Dyspepsia [Unknown]
  - Drug intolerance [Unknown]
